FAERS Safety Report 9371195 (Version 1)
Quarter: 2013Q2

REPORT INFORMATION
  Report Type: Spontaneous
  Country: US (occurrence: US)
  Receive Date: 20130627
  Receipt Date: 20130627
  Transmission Date: 20140414
  Serious: No
  Sender: FDA-Public Use
  Company Number: US-BIOGENIDEC-2013BI023972

PATIENT
  Age: 41 Year
  Sex: Female

DRUGS (3)
  1. AVONEX [Suspect]
     Indication: CLINICALLY ISOLATED SYNDROME
     Route: 030
     Dates: start: 20120618
  2. AVONEX [Suspect]
     Indication: CLINICALLY ISOLATED SYNDROME
     Route: 030
     Dates: start: 20120626
  3. AVONEX [Suspect]
     Indication: CLINICALLY ISOLATED SYNDROME
     Dates: start: 20120702

REACTIONS (5)
  - Cystitis [Recovered/Resolved]
  - Inappropriate schedule of drug administration [Unknown]
  - Urinary incontinence [Recovered/Resolved]
  - Optic neuritis [Unknown]
  - Off label use [Unknown]
